FAERS Safety Report 6955751-1 (Version None)
Quarter: 2010Q3

REPORT INFORMATION
  Report Type: 
  Country: None (occurrence: None)
  Receive Date: 20100830
  Receipt Date: 20100701
  Transmission Date: 20110219
  Serious: Yes (Other)
  Sender: FDA-Public Use
  Company Number: US-AMGEN-QUU421938

PATIENT
  Sex: Female

DRUGS (3)
  1. NPLATE [Suspect]
     Indication: IDIOPATHIC THROMBOCYTOPENIC PURPURA
     Dates: end: 20100623
  2. IMMU-G [Concomitant]
     Route: 042
  3. RITUXIMAB [Concomitant]

REACTIONS (1)
  - DRUG INEFFECTIVE [None]
